FAERS Safety Report 6354556-2 (Version None)
Quarter: 2009Q3

REPORT INFORMATION
  Report Type: 
  Country: None (occurrence: None)
  Receive Date: 20090909
  Receipt Date: 20090824
  Transmission Date: 20100115
  Serious: Yes (Hospitalization)
  Sender: FDA-Public Use
  Company Number: 001382

PATIENT
  Sex: Male

DRUGS (2)
  1. LACOSAMIDE [Suspect]
     Dosage: (300 MG), (400 MG)
  2. LEVETIRACETAM [Suspect]
     Dosage: (4000 MG)

REACTIONS (1)
  - GRAND MAL CONVULSION [None]
